FAERS Safety Report 6017090-5 (Version None)
Quarter: 2008Q4

REPORT INFORMATION
  Report Type: 
  Country: None (occurrence: None)
  Receive Date: 20081219
  Receipt Date: 20081204
  Transmission Date: 20090506
  Serious: Yes (Other)
  Sender: FDA-Public Use
  Company Number: 2008-188052-NL

PATIENT
  Sex: 0

DRUGS (4)
  1. REMERON [Suspect]
     Dosage: ORAL
     Route: 048
  2. TRAZODONE [Concomitant]
  3. EFFEXOR [Concomitant]
  4. CYMBALTA [Concomitant]

REACTIONS (1)
  - PHAEOCHROMOCYTOMA [None]
